FAERS Safety Report 24777249 (Version 2)
Quarter: 2025Q3

REPORT INFORMATION
  Report Type: Spontaneous
  Country: EU (occurrence: EU)
  Receive Date: 20241226
  Receipt Date: 20250813
  Transmission Date: 20251021
  Serious: Yes (Life-Threatening, Hospitalization, Other)
  Sender: BAYER HEALTHCARE PHARMACEUTICALS INC.
  Company Number: EU-BAYER-2024A179788

PATIENT
  Age: 95 Year
  Sex: Female

DRUGS (2)
  1. CIPROFLOXACIN [Suspect]
     Active Substance: CIPROFLOXACIN
     Indication: Erysipelas
     Route: 042
  2. WARFARIN [Interacting]
     Active Substance: WARFARIN
     Indication: Atrial fibrillation

REACTIONS (17)
  - Spontaneous haemorrhage [None]
  - Acute kidney injury [None]
  - Anaemia [None]
  - Hypovolaemia [None]
  - Anticoagulation drug level above therapeutic [Recovered/Resolved]
  - Intentional product misuse [None]
  - Labelled drug-drug interaction issue [None]
  - Tachycardia [Unknown]
  - Drug interaction [Unknown]
  - International normalised ratio increased [Recovered/Resolved]
  - Renal impairment [None]
  - Contusion [None]
  - Hypotension [None]
  - Tachypnoea [None]
  - Fatigue [None]
  - Inflammation [None]
  - Anticoagulation drug level increased [None]
